FAERS Safety Report 8704843 (Version 4)
Quarter: 2013Q2

REPORT INFORMATION
  Report Type: Report from Study
  Country: JP (occurrence: JP)
  Receive Date: 20120803
  Receipt Date: 20130410
  Transmission Date: 20140414
  Serious: Yes (Hospitalization, Other)
  Sender: FDA-Public Use
  Company Number: JP-009507513-1207JPN012653

PATIENT
  Age: 68 Year
  Sex: Female
  Weight: 69 kg

DRUGS (17)
  1. PEGINTRON [Suspect]
     Indication: CHRONIC HEPATITIS C
     Dosage: 1.5 MICROGRAM PER KILOGRAM, QW
     Route: 058
     Dates: start: 20120607, end: 20120711
  2. PEGINTRON [Suspect]
     Dosage: 50 MICROGRAM, QW
     Route: 058
     Dates: start: 20120712, end: 20120718
  3. PEGINTRON [Suspect]
     Dosage: 80 MICROGRAM ,QW
     Route: 058
     Dates: end: 20120712
  4. REBETOL [Suspect]
     Indication: CHRONIC HEPATITIS C
     Dosage: 600 MG, QD (CUMULATIVE DOSE: 8400 MG)
     Route: 048
     Dates: start: 20120607, end: 20120704
  5. REBETOL [Suspect]
     Dosage: 400 MG, QD (CUMULATIVE DOSE: 8400 MG)
     Route: 048
     Dates: start: 20120705, end: 20120712
  6. REBETOL [Suspect]
     Dosage: 200 MG, QD (CUMULATIVE DOSE: 8400 MG)
     Route: 048
     Dates: start: 20120713, end: 20120718
  7. TELAVIC [Suspect]
     Indication: CHRONIC HEPATITIS C
     Dosage: 2250 MLLIGRAMS, QD (CUMULATIVE DOSE: 29250 MG)
     Route: 048
     Dates: start: 20120607, end: 20120617
  8. TELAVIC [Suspect]
     Dosage: 1500 MILLIGRAMS, QD (CUMULATIVE DOSE: 29250 MG)
     Route: 048
     Dates: start: 20120618, end: 20120718
  9. SALAGEN TABLETS [Concomitant]
     Indication: PROPHYLAXIS
     Dosage: 15 MG, QD
     Route: 048
     Dates: end: 20120729
  10. BLOPRESS [Concomitant]
     Indication: PROPHYLAXIS
     Dosage: 8 MG, QD, FORMULATION: POR
     Route: 048
     Dates: end: 20120626
  11. BLOPRESS [Concomitant]
     Indication: BLOOD PRESSURE INCREASED
     Dosage: 8 MG, QD
     Route: 048
  12. AMLODIPINE [Concomitant]
     Indication: PROPHYLAXIS
     Dosage: 5 MG, QD, FORMULATION: POR
     Route: 048
  13. AMLODIPINE [Concomitant]
     Indication: BLOOD PRESSURE INCREASED
  14. TAKEPRON [Concomitant]
     Indication: PROPHYLAXIS
     Dosage: 15 MG, QD, FORMULATION: POR
     Route: 048
  15. SALOBEL [Concomitant]
     Indication: PROPHYLAXIS
     Dosage: 200 MG, QD (CUMULATIVE DOSE: 3000 MG), FORMULATION: POR
     Route: 048
     Dates: start: 20120606, end: 20120724
  16. NAUZELIN [Concomitant]
     Dosage: 30 MG, QD, FORMULATION: POR
     Route: 048
     Dates: start: 20120613, end: 20120628
  17. MAGLAX (MAGNESIUM SULFATE) [Concomitant]
     Indication: CONSTIPATION
     Dosage: 1500 MILLIGRAMS,QD, FORMULATION: POR
     Route: 048

REACTIONS (4)
  - Ascites [Recovering/Resolving]
  - Decreased appetite [Recovering/Resolving]
  - Anaemia [Recovering/Resolving]
  - Anaemia [Recovered/Resolved]
